FAERS Safety Report 11196957 (Version 1)
Quarter: 2015Q2

REPORT INFORMATION
  Report Type: Spontaneous
  Country: AT (occurrence: AT)
  Receive Date: 20150617
  Receipt Date: 20150617
  Transmission Date: 20150821
  Serious: Yes (Hospitalization, Other)
  Sender: FDA-Public Use
  Company Number: AT-BAYER-2014-153269

PATIENT
  Age: 39 Year
  Sex: Female
  Weight: 75 kg

DRUGS (1)
  1. MIRENA [Suspect]
     Active Substance: LEVONORGESTREL
     Dosage: 20 MCG/24HR, CONT
     Route: 015
     Dates: start: 20110718

REACTIONS (6)
  - Pregnancy with contraceptive device [None]
  - Premature labour [None]
  - Cervical incompetence [None]
  - Drug ineffective [None]
  - Device dislocation [Not Recovered/Not Resolved]
  - Caesarean section [None]

NARRATIVE: CASE EVENT DATE: 20150405
